FAERS Safety Report 4519327-8 (Version None)
Quarter: 2004Q4

REPORT INFORMATION
  Report Type: 
  Country: None (occurrence: None)
  Receive Date: 20041206
  Receipt Date: 20041124
  Transmission Date: 20050328
  Serious: Yes (Death, Hospitalization)
  Sender: FDA-Public Use
  Company Number: AU-GLAXOSMITHKLINE-B0358875A

PATIENT
  Age: 99 Year
  Sex: Male

DRUGS (10)
  1. AVANDIA [Suspect]
     Dosage: 4MG PER DAY
     Route: 048
  2. WARFARIN SODIUM [Suspect]
     Indication: ATRIAL FIBRILLATION
     Route: 048
  3. METFORMIN HCL [Suspect]
     Dosage: 3G PER DAY
     Route: 065
  4. GLUCOPHAGE [Suspect]
     Route: 065
  5. LANOXIN [Concomitant]
     Dosage: 125MCG PER DAY
     Route: 065
  6. LASIX [Concomitant]
     Dosage: 40MG UNKNOWN
     Route: 065
  7. LIPITOR [Concomitant]
     Dosage: 20MG UNKNOWN
     Route: 065
  8. NOTEN [Concomitant]
     Dosage: 50MG UNKNOWN
     Route: 065
  9. INSULIN [Concomitant]
     Dates: start: 20040501
  10. TRITACE [Concomitant]
     Dosage: .5MG PER DAY

REACTIONS (23)
  - ACIDOSIS [None]
  - ALANINE AMINOTRANSFERASE INCREASED [None]
  - ASCITES [None]
  - ASPARTATE AMINOTRANSFERASE INCREASED [None]
  - ASTHENIA [None]
  - BLOOD ALKALINE PHOSPHATASE INCREASED [None]
  - BLOOD BILIRUBIN INCREASED [None]
  - BLOOD CREATININE INCREASED [None]
  - BLOOD LACTIC ACID DECREASED [None]
  - CARDIOMYOPATHY [None]
  - CONDITION AGGRAVATED [None]
  - DRUG INTERACTION [None]
  - FALL [None]
  - GAMMA-GLUTAMYLTRANSFERASE INCREASED [None]
  - HEPATIC FAILURE [None]
  - HEPATOMEGALY [None]
  - INTERNATIONAL NORMALISED RATIO INCREASED [None]
  - LIVER DISORDER [None]
  - LIVER FUNCTION TEST ABNORMAL [None]
  - MUSCLE ATROPHY [None]
  - PORTAL VEIN THROMBOSIS [None]
  - SOMNOLENCE [None]
  - TACHYCARDIA [None]
